FAERS Safety Report 8846899 (Version 1)
Quarter: 2012Q4

REPORT INFORMATION
  Report Type: Spontaneous
  Country: US (occurrence: None)
  Receive Date: 20121017
  Receipt Date: 20121017
  Transmission Date: 20130627
  Serious: Yes (Other)
  Sender: FDA-Public Use
  Company Number: None

PATIENT
  Age: 18 Year
  Sex: Male
  Weight: 54.43 kg

DRUGS (1)
  1. CONCERTA [Suspect]
     Route: 048
     Dates: start: 20120601, end: 20121016

REACTIONS (8)
  - Weight decreased [None]
  - Irritability [None]
  - Insomnia [None]
  - Hypophagia [None]
  - Psychotic disorder [None]
  - Anger [None]
  - Aggression [None]
  - Hallucination, auditory [None]
